FAERS Safety Report 4398317-2 (Version None)
Quarter: 2004Q3

REPORT INFORMATION
  Report Type: 
  Country: None (occurrence: None)
  Receive Date: 20040713
  Receipt Date: 20040628
  Transmission Date: 20050211
  Serious: Yes (Hospitalization)
  Sender: FDA-Public Use
  Company Number: 237451

PATIENT
  Age: 69 Year
  Sex: Female

DRUGS (7)
  1. NOVONORM (REPAGLINIDE TABLET, 2.0 MG [Suspect]
     Indication: INSULIN-REQUIRING TYPE II DIABETES MELLITUS
     Dosage: 3 MG, QD, PER ORAL
     Route: 048
     Dates: end: 20040503
  2. PRETERAX (INDAPAMIDE, PERINDOPRIL ERBUMINE) [Concomitant]
  3. GLUCOPHAG [Concomitant]
  4. ALLOPURINOL [Concomitant]
  5. KARDEGIC/FRA/(ACETYLSALICYLIC LYSINE) [Concomitant]
  6. FENOFIBRATE [Concomitant]
  7. AUGMENTIN '125' [Concomitant]

REACTIONS (9)
  - AGRANULOCYTOSIS [None]
  - BLOOD CREATININE INCREASED [None]
  - HAEMOGLOBIN DECREASED [None]
  - INFLAMMATION [None]
  - LABORATORY TEST ABNORMAL [None]
  - PLATELET COUNT INCREASED [None]
  - RASH ERYTHEMATOUS [None]
  - SKIN ULCER [None]
  - WHITE BLOOD CELL COUNT DECREASED [None]
